FAERS Safety Report 5221249-4 (Version None)
Quarter: 2007Q1

REPORT INFORMATION
  Report Type: 
  Country: None (occurrence: None)
  Receive Date: 20070126
  Receipt Date: 20070116
  Transmission Date: 20070707
  Serious: Yes (Other)
  Sender: FDA-Public Use
  Company Number: FR-PFIZER INC-2005126040

PATIENT
  Sex: Female
  Weight: 53 kg

DRUGS (4)
  1. MISOPROSTOL TABLET [Suspect]
     Indication: ABORTION INDUCED
     Route: 048
     Dates: start: 20050728, end: 20050728
  2. MIFEPRISTONE [Suspect]
     Indication: ABORTION INDUCED
     Route: 065
     Dates: start: 20050726, end: 20050726
  3. MULTIVITAMINS [Suspect]
     Route: 048
     Dates: start: 20051114, end: 20060407
  4. DAFLON 500 [Suspect]
     Indication: LIMB DISCOMFORT
     Route: 048
     Dates: start: 20051114, end: 20060501

REACTIONS (2)
  - DRUG INEFFECTIVE [None]
  - PYELONEPHRITIS [None]
